FAERS Safety Report 9616973 (Version 1)
Quarter: 2013Q4

REPORT INFORMATION
  Report Type: Spontaneous
  Country: US (occurrence: US)
  Receive Date: 20131011
  Receipt Date: 20131011
  Transmission Date: 20140711
  Serious: No
  Sender: FDA-Public Use
  Company Number: US-BAYER-2013-123012

PATIENT
  Age: 86 Year
  Sex: Male
  Weight: 86.17 kg

DRUGS (4)
  1. ALEVE CAPLET [Suspect]
     Indication: ANALGESIC THERAPY
     Dosage: 3 DF, TID
     Route: 048
     Dates: start: 20131004
  2. BAYER GENUINE ASPIRIN ORIGINAL STRENGTH [Concomitant]
  3. CARVEDILOL [Concomitant]
  4. ATORVASTATIN [Concomitant]

REACTIONS (1)
  - Extra dose administered [None]
